FAERS Safety Report 15797073 (Version 2)
Quarter: 2019Q1

REPORT INFORMATION
  Report Type: Report from Study
  Country: US (occurrence: US)
  Receive Date: 20190108
  Receipt Date: 20190206
  Transmission Date: 20190417
  Serious: Yes (Other)
  Sender: FDA-Public Use
  Company Number: US-TEVA-2019-US-995853

PATIENT
  Sex: Female

DRUGS (2)
  1. AUSTEDO [Suspect]
     Active Substance: DEUTETRABENAZINE
     Indication: TARDIVE DYSKINESIA
     Dates: start: 20180710
  2. LITHIUM. [Concomitant]
     Active Substance: LITHIUM

REACTIONS (4)
  - Suicidal ideation [Recovered/Resolved]
  - Bipolar disorder [Not Recovered/Not Resolved]
  - Depression [Recovering/Resolving]
  - Condition aggravated [Unknown]
